FAERS Safety Report 19675143 (Version 1)
Quarter: 2021Q3

REPORT INFORMATION
  Report Type: Spontaneous
  Country: US (occurrence: US)
  Receive Date: 20210809
  Receipt Date: 20210809
  Transmission Date: 20211014
  Serious: No
  Sender: FDA-Public Use
  Company Number: US-AUROBINDO-AUR-APL-2021-003418

PATIENT
  Age: 64 Year
  Sex: Female
  Weight: 74 kg

DRUGS (4)
  1. LEVOFLOXACIN TABLETS 500MG [Suspect]
     Active Substance: LEVOFLOXACIN
     Indication: SINUSITIS
     Dosage: UNK, TWICE A YEAR
     Route: 065
     Dates: start: 202002
  2. LEVOFLOXACIN TABLETS 750MG [Suspect]
     Active Substance: LEVOFLOXACIN
     Indication: SINUSITIS
     Dosage: UNK
     Route: 065
     Dates: start: 202002, end: 20210406
  3. LEVOFLOXACIN TABLETS 500MG [Suspect]
     Active Substance: LEVOFLOXACIN
     Dosage: UNK, WHEN FELT SICK
     Route: 065
  4. LEVOFLOXACIN TABLETS 500MG [Suspect]
     Active Substance: LEVOFLOXACIN
     Dosage: UNK, EVERY MONTH
     Route: 065
     Dates: end: 20210406

REACTIONS (10)
  - Tendon disorder [Unknown]
  - Pyrexia [Unknown]
  - Salivary gland calculus [Unknown]
  - Drug ineffective [Unknown]
  - Wrong technique in product usage process [Unknown]
  - Infection [Unknown]
  - Tendon rupture [Unknown]
  - Swelling face [Unknown]
  - Erythema [Unknown]
  - Malaise [Unknown]

NARRATIVE: CASE EVENT DATE: 202011
